FAERS Safety Report 17892251 (Version 4)
Quarter: 2024Q2

REPORT INFORMATION
  Report Type: Spontaneous
  Country: US (occurrence: US)
  Receive Date: 20200612
  Receipt Date: 20240416
  Transmission Date: 20240716
  Serious: No
  Sender: FDA-Public Use
  Company Number: US-BIOMARINAP-US-2020-130256

PATIENT

DRUGS (2)
  1. LARONIDASE [Suspect]
     Active Substance: LARONIDASE
     Indication: Mucopolysaccharidosis I
     Dosage: 43.50 MG, QW
     Route: 042
     Dates: start: 20190816
  2. LARONIDASE [Suspect]
     Active Substance: LARONIDASE
     Dosage: 34.8 MG, QW
     Route: 042
     Dates: start: 20200516

REACTIONS (3)
  - Poor venous access [Unknown]
  - Vein collapse [Unknown]
  - Knee operation [Recovering/Resolving]

NARRATIVE: CASE EVENT DATE: 20200512
